FAERS Safety Report 6073694-5 (Version None)
Quarter: 2009Q1

REPORT INFORMATION
  Report Type: 
  Country: None (occurrence: None)
  Receive Date: 20090211
  Receipt Date: 20090202
  Transmission Date: 20090719
  Serious: Yes (Other)
  Sender: FDA-Public Use
  Company Number: KR-ABBOTT-09P-090-0497444-00

PATIENT
  Age: 58 Year
  Sex: Female

DRUGS (4)
  1. VALPROATE SODIUM [Suspect]
     Indication: DRUG USE FOR UNKNOWN INDICATION
     Dosage: 900-1200 MG
  2. HENYTOIN SODIUM [Concomitant]
     Indication: DRUG USE FOR UNKNOWN INDICATION
  3. LACTULOSE [Concomitant]
     Indication: DRUG USE FOR UNKNOWN INDICATION
     Route: 054
  4. LACTULOSE [Concomitant]
     Route: 050

REACTIONS (5)
  - COMA [None]
  - CONVULSION [None]
  - HYPERAMMONAEMIA [None]
  - HYPERAMMONAEMIC ENCEPHALOPATHY [None]
  - METABOLIC ENCEPHALOPATHY [None]
